FAERS Safety Report 19258757 (Version 1)
Quarter: 2021Q2

REPORT INFORMATION
  Report Type: Spontaneous
  Country: US (occurrence: US)
  Receive Date: 20210514
  Receipt Date: 20210514
  Transmission Date: 20210717
  Serious: Yes (Hospitalization)
  Sender: FDA-Public Use
  Company Number: US-ADAMAS_PHARMACEUTICALS-USA-POI1235202100056

PATIENT
  Age: 67 Year
  Sex: Male
  Weight: 72.55 kg

DRUGS (5)
  1. OSMOLEX ER [Suspect]
     Active Substance: AMANTADINE
     Dates: start: 20210506
  2. ONGENTYS [Suspect]
     Active Substance: OPICAPONE
     Indication: PRODUCT USED FOR UNKNOWN INDICATION
  3. CARBIDOPA AND LEVODOPA [Concomitant]
     Active Substance: CARBIDOPA\LEVODOPA
     Indication: PRODUCT USED FOR UNKNOWN INDICATION
     Dosage: FORMULATION 25 MG CARBIDOPA, 100 MG LEVODOPA, UNIT DOSE 50 MG GIVEN 5 TIMES DAILY
     Dates: start: 20160920
  4. OSMOLEX ER [Suspect]
     Active Substance: AMANTADINE
     Indication: PARKINSON^S DISEASE
     Dates: start: 20200616, end: 202103
  5. RYTARY [Suspect]
     Active Substance: CARBIDOPA\LEVODOPA
     Indication: PRODUCT USED FOR UNKNOWN INDICATION
     Dosage: FORMULATION 36 MG CARBIDOPA, 145 MG LEVODOPA, GIVEN 5 TIMES DAILY
     Dates: start: 20170105

REACTIONS (1)
  - Medical observation [Recovered/Resolved]

NARRATIVE: CASE EVENT DATE: 202103
